FAERS Safety Report 6687344-8 (Version None)
Quarter: 2010Q2

REPORT INFORMATION
  Report Type: 
  Country: None (occurrence: None)
  Receive Date: 20100419
  Receipt Date: 20100406
  Transmission Date: 20101027
  Serious: Yes (Hospitalization)
  Sender: FDA-Public Use
  Company Number: DE-ELI_LILLY_AND_COMPANY-DE201003001178

PATIENT
  Sex: Female

DRUGS (6)
  1. CYMBALTA [Suspect]
     Indication: DEPRESSION
     Dosage: 90 MG, UNK
     Route: 048
     Dates: start: 20080101
  2. ATOSIL [Concomitant]
     Dosage: UNK, UNKNOWN
     Route: 065
  3. LYRICA [Concomitant]
     Indication: DEPRESSION
     Dosage: UNK, UNKNOWN
  4. MIRTAZAPINE [Concomitant]
     Indication: DEPRESSION
     Dosage: UNK, UNKNOWN
  5. SALOFALK [Concomitant]
     Dosage: 2 D/F, 3/D
  6. ENAHEXAL                           /00574902/ [Concomitant]
     Indication: HYPERTENSION
     Dosage: UNK, UNKNOWN
     Route: 065

REACTIONS (1)
  - COLITIS ULCERATIVE [None]
